FAERS Safety Report 7739212-8 (Version None)
Quarter: 2011Q3

REPORT INFORMATION
  Report Type: 
  Country: None (occurrence: None)
  Receive Date: 20110909
  Receipt Date: 20110906
  Transmission Date: 20111222
  Serious: No
  Sender: FDA-Public Use
  Company Number: US-PFIZER INC-2011208701

PATIENT
  Sex: Female

DRUGS (1)
  1. NORVASC [Suspect]
     Dosage: UNK

REACTIONS (7)
  - GINGIVITIS [None]
  - TOOTH EXTRACTION [None]
  - VITAMIN B12 DEFICIENCY [None]
  - DENTAL CARIES [None]
  - ORAL DISCOMFORT [None]
  - DRY MOUTH [None]
  - ENDODONTIC PROCEDURE [None]
